FAERS Safety Report 4948870-2 (Version None)
Quarter: 2006Q1

REPORT INFORMATION
  Report Type: 
  Country: None (occurrence: None)
  Receive Date: 20060321
  Receipt Date: 20060307
  Transmission Date: 20060701
  Serious: Yes (Hospitalization)
  Sender: FDA-Public Use
  Company Number: US-AMGEN-STX171432

PATIENT
  Sex: Female

DRUGS (8)
  1. ENBREL [Suspect]
     Indication: RHEUMATOID ARTHRITIS
     Route: 058
     Dates: start: 20051101, end: 20060119
  2. CELEBREX [Concomitant]
  3. METHOTREXATE [Concomitant]
  4. PLAQUENIL [Concomitant]
  5. ACIPHEX [Concomitant]
  6. PREMARIN [Concomitant]
  7. GLUCOSAMINE [Concomitant]
  8. FOLIC ACID [Concomitant]

REACTIONS (4)
  - CHOLELITHIASIS [None]
  - GLUCOSE TOLERANCE IMPAIRED [None]
  - PANCREATITIS NECROTISING [None]
  - PSEUDOCYST [None]
